FAERS Safety Report 12455129 (Version 2)
Quarter: 2016Q3

REPORT INFORMATION
  Report Type: Spontaneous
  Country: GB (occurrence: GB)
  Receive Date: 20160610
  Receipt Date: 20160729
  Transmission Date: 20161109
  Serious: Yes (Hospitalization, Other)
  Sender: FDA-Public Use
  Company Number: US-ACTAVISPR-2016-11360

PATIENT
  Age: 70 Year
  Sex: Male

DRUGS (2)
  1. SPIRONOLACTONE (UNKNOWN) [Suspect]
     Active Substance: SPIRONOLACTONE
     Indication: CARDIAC FAILURE CONGESTIVE
     Dosage: 5 X 40 MG TABLETS (3 AND 2), DAILY
     Route: 048
     Dates: start: 20160524, end: 20160528
  2. SPIRONOLACTONE (UNKNOWN) [Suspect]
     Active Substance: SPIRONOLACTONE
     Dosage: 50 MG, UNKNOWN
     Route: 048
     Dates: start: 20160524, end: 20160530

REACTIONS (9)
  - Face oedema [Unknown]
  - Confusional state [Unknown]
  - Pericardial effusion [Unknown]
  - Incontinence [Unknown]
  - Renal function test abnormal [Unknown]
  - Decreased appetite [Unknown]
  - Lower respiratory tract infection [Unknown]
  - Urine output decreased [Unknown]
  - Cardiac failure [Unknown]
